FAERS Safety Report 8547970-8 (Version None)
Quarter: 2012Q3

REPORT INFORMATION
  Report Type: 
  Country: None (occurrence: None)
  Receive Date: 20120729
  Receipt Date: 20120717
  Transmission Date: 20120928
  Serious: Yes (Hospitalization, Other)
  Sender: FDA-Public Use
  Company Number: US-009507513-1110USA02425

PATIENT

DRUGS (4)
  1. FOSAMAX [Suspect]
     Indication: OSTEOPOROSIS
     Dosage: 70 MG, UNK
     Route: 048
     Dates: start: 20001201, end: 20070401
  2. FOSAMAX [Suspect]
     Indication: OSTEOPENIA
     Dosage: 10 MG, UNK
     Route: 048
     Dates: start: 20000101, end: 20080101
  3. FOSAMAX PLUS D [Suspect]
     Indication: OSTEOPENIA
     Dosage: 70/2800
     Route: 048
     Dates: start: 20061001, end: 20070401
  4. FOSAMAX PLUS D [Suspect]
     Dosage: 70MG/2800
     Route: 048
     Dates: start: 20070501, end: 20081211

REACTIONS (30)
  - ADVERSE EVENT [None]
  - VITAMIN D DEFICIENCY [None]
  - CALCIUM DEFICIENCY [None]
  - PERIOSTITIS [None]
  - OSTEOARTHRITIS [None]
  - GLAUCOMA [None]
  - INFECTION [None]
  - FALL [None]
  - LOW TURNOVER OSTEOPATHY [None]
  - TOOTH FRACTURE [None]
  - BACK DISORDER [None]
  - FEMUR FRACTURE [None]
  - OSTEOPOROSIS [None]
  - DIVERTICULUM [None]
  - GASTROOESOPHAGEAL REFLUX DISEASE [None]
  - PAIN IN EXTREMITY [None]
  - CHOLECYSTECTOMY [None]
  - ARTHROPATHY [None]
  - ARTHRITIS [None]
  - PARATHYROID DISORDER [None]
  - TOOTH DISORDER [None]
  - COLONIC POLYP [None]
  - DENTAL CARIES [None]
  - FRACTURE [None]
  - FOOT FRACTURE [None]
  - BONE DISORDER [None]
  - FRACTURE NONUNION [None]
  - ARTHRALGIA [None]
  - CATARACT [None]
  - OEDEMA PERIPHERAL [None]
